FAERS Safety Report 5044459-8 (Version None)
Quarter: 2006Q3

REPORT INFORMATION
  Report Type: 
  Country: None (occurrence: None)
  Receive Date: 20060706
  Receipt Date: 20060703
  Transmission Date: 20061208
  Serious: Yes (Hospitalization)
  Sender: FDA-Public Use
  Company Number: US-GLAXOSMITHKLINE-A0610986A

PATIENT
  Age: 73 Year
  Sex: Female

DRUGS (6)
  1. COREG [Suspect]
     Indication: DRUG USE FOR UNKNOWN INDICATION
     Dosage: 12.5MG PER DAY
     Route: 048
  2. ALBUTEROL SPIROS [Concomitant]
  3. LANOXIN [Concomitant]
  4. POTASSIUM [Concomitant]
  5. ACEON [Concomitant]
  6. LASIX [Concomitant]

REACTIONS (4)
  - DYSPNOEA [None]
  - LUNG DISORDER [None]
  - MOBILITY DECREASED [None]
  - MYOCARDIAL INFARCTION [None]
